FAERS Safety Report 21120952 (Version 1)
Quarter: 2022Q3

REPORT INFORMATION
  Report Type: Spontaneous
  Country: FI (occurrence: FI)
  Receive Date: 20220722
  Receipt Date: 20220722
  Transmission Date: 20221027
  Serious: Yes (Hospitalization, Other)
  Sender: FDA-Public Use
  Company Number: FI-SUN PHARMACEUTICAL INDUSTRIES LTD-2022RR-341470

PATIENT
  Age: 84 Year
  Sex: Female

DRUGS (6)
  1. BISOPROLOL [Interacting]
     Active Substance: BISOPROLOL
     Indication: Product used for unknown indication
     Dosage: 10 MILLIGRAM DAILY; 5 MILLIGRAM, BID, THERAPY START DATE : ASKU, THERAPY END DATE : ASKU
     Route: 065
  2. ATORVASTATIN [Interacting]
     Active Substance: ATORVASTATIN
     Indication: Product used for unknown indication
     Dosage: 40 MILLIGRAM DAILY; 40 MILLIGRAM, DAILY,THERAPY START DATE : ASKU, THERAPY END DATE : ASKU
     Route: 065
  3. TRIMETHOPRIM [Interacting]
     Active Substance: TRIMETHOPRIM
     Indication: Urinary tract infection
     Dosage: UNK, THERAPY START DATE : ASKU, THERAPY END DATE : ASKU
     Route: 065
  4. TRIMETHOPRIM [Interacting]
     Active Substance: TRIMETHOPRIM
     Indication: Confusional state
  5. APIXABAN [Interacting]
     Active Substance: APIXABAN
     Indication: Cerebrovascular accident prophylaxis
     Dosage: 5 MILLIGRAM DAILY; 2.5 MILLIGRAM, BID, THERAPY START DATE : ASKU, THERAPY END DATE : ASKU
     Route: 065
  6. DIGOXIN [Interacting]
     Active Substance: DIGOXIN
     Indication: Product used for unknown indication
     Dosage: .25 MILLIGRAM DAILY; 0.25 MILLIGRAM, DAILY, THERAPY START DATE : ASKU, THERAPY END DATE : ASKU
     Route: 065

REACTIONS (12)
  - Malaise [Recovered/Resolved]
  - Fatigue [Recovered/Resolved]
  - Nausea [Recovered/Resolved]
  - Potentiating drug interaction [Unknown]
  - Cardioactive drug level increased [Recovered/Resolved]
  - Dyspnoea [Recovered/Resolved]
  - Neurological symptom [Recovered/Resolved]
  - Skin laceration [Recovered/Resolved]
  - Circulatory collapse [Recovered/Resolved]
  - Asthenia [Recovered/Resolved]
  - General physical health deterioration [Recovered/Resolved]
  - Confusional state [Recovered/Resolved]
